FAERS Safety Report 21949199 (Version 1)
Quarter: 2023Q1

REPORT INFORMATION
  Report Type: Spontaneous
  Country: US (occurrence: None)
  Receive Date: 20230202
  Receipt Date: 20230202
  Transmission Date: 20230417
  Serious: Yes (Hospitalization)
  Sender: FDA-Public Use
  Company Number: None

PATIENT
  Sex: Male

DRUGS (2)
  1. FLUOROURACIL [Suspect]
     Active Substance: FLUOROURACIL
     Indication: Colon cancer
     Dosage: FREQUENCY : EVERY OTHER WEEK;?
     Route: 042
     Dates: start: 202210
  2. PROCRIT [Suspect]
     Active Substance: ERYTHROPOIETIN
     Indication: Colon cancer
     Dosage: OTHER STRENGTH : 40,000U/ML ;?FREQUENCY : WEEKLY;?
     Route: 058
     Dates: start: 202212

REACTIONS (1)
  - Urinary tract obstruction [None]
